FAERS Safety Report 4396553-2 (Version None)
Quarter: 2004Q2

REPORT INFORMATION
  Report Type: 
  Country: None (occurrence: None)
  Receive Date: 20040621
  Receipt Date: 20020628
  Transmission Date: 20050107
  Serious: Yes (Death)
  Sender: FDA-Public Use
  Company Number: USA-2002-0001537

PATIENT
  Age: 44 Year
  Sex: Male
  Weight: 90.7 kg

DRUGS (6)
  1. OXYCONTIN [Suspect]
  2. HYDROCODONE BITARTRATE [Suspect]
  3. MIRTAZAPINE [Suspect]
  4. ACETAMINOPHEN [Suspect]
  5. PROZAC [Suspect]
  6. QUINIDINE (QUINIDINE) [Suspect]

REACTIONS (1)
  - ACCIDENTAL OVERDOSE [None]
